FAERS Safety Report 8029119-3 (Version None)
Quarter: 2012Q1

REPORT INFORMATION
  Report Type: 
  Country: None (occurrence: None)
  Receive Date: 20120106
  Receipt Date: 20111226
  Transmission Date: 20120608
  Serious: Yes (Other)
  Sender: FDA-Public Use
  Company Number: PHHY2011FR113297

PATIENT
  Sex: Male

DRUGS (5)
  1. GLEEVEC [Suspect]
     Dosage: 400 MG, DAILY
     Dates: start: 20000101
  2. BETA BLOCKING AGENTS [Concomitant]
  3. GLEEVEC [Suspect]
     Indication: MYELOID LEUKAEMIA
     Dosage: 400 MG-600 MG, DAILY
     Dates: start: 20000101
  4. DIGOXIN [Concomitant]
  5. SINTROM [Concomitant]

REACTIONS (10)
  - RETINAL HAEMORRHAGE [None]
  - CATARACT [None]
  - PETECHIAE [None]
  - AGE-RELATED MACULAR DEGENERATION [None]
  - EYE DISORDER [None]
  - VIRAL INFECTION [None]
  - PLATELET COUNT DECREASED [None]
  - SHOCK [None]
  - ANAEMIA [None]
  - PURPURA SENILE [None]
